FAERS Safety Report 8033753-4 (Version None)
Quarter: 2012Q1

REPORT INFORMATION
  Report Type: 
  Country: None (occurrence: None)
  Receive Date: 20120110
  Receipt Date: 20120102
  Transmission Date: 20120608
  Serious: Yes (Hospitalization)
  Sender: FDA-Public Use
  Company Number: FR-JNJFOC-20120101112

PATIENT
  Sex: Female
  Weight: 100.3 kg

DRUGS (7)
  1. PLAVIX [Concomitant]
     Indication: ANTICOAGULANT THERAPY
  2. PALIPERIDONE [Suspect]
     Indication: SCHIZOPHRENIA
     Route: 030
     Dates: start: 20111116
  3. TERCIAN [Concomitant]
     Indication: ANXIETY
  4. CLONAZEPAM [Concomitant]
     Indication: INSOMNIA
  5. PRAVASTATIN [Concomitant]
     Indication: HYPERCHOLESTEROLAEMIA
  6. METFORMIN HCL [Concomitant]
     Indication: DIABETES MELLITUS
  7. DEPAKENE [Concomitant]
     Indication: AFFECT LABILITY

REACTIONS (1)
  - BACK PAIN [None]
